FAERS Safety Report 6595238-1 (Version None)
Quarter: 2010Q1

REPORT INFORMATION
  Report Type: 
  Country: None (occurrence: None)
  Receive Date: 20100212
  Receipt Date: 20100129
  Transmission Date: 20100710
  Serious: Yes (Other)
  Sender: FDA-Public Use
  Company Number: 2010SP006887

PATIENT
  Age: 96 Year
  Sex: Female

DRUGS (7)
  1. CORICIDIN [Suspect]
     Indication: COUGH
     Dosage: BID; PO, TID; PO, ONCE; PO
     Route: 048
     Dates: start: 20100124
  2. CORICIDIN [Suspect]
     Indication: RHINORRHOEA
     Dosage: BID; PO, TID; PO, ONCE; PO
     Route: 048
     Dates: start: 20100124
  3. CORICIDIN [Suspect]
     Indication: COUGH
     Dosage: BID; PO, TID; PO, ONCE; PO
     Route: 048
     Dates: start: 20100125
  4. CORICIDIN [Suspect]
     Indication: RHINORRHOEA
     Dosage: BID; PO, TID; PO, ONCE; PO
     Route: 048
     Dates: start: 20100125
  5. CORICIDIN [Suspect]
     Indication: COUGH
     Dosage: BID; PO, TID; PO, ONCE; PO
     Route: 048
     Dates: start: 20100126
  6. CORICIDIN [Suspect]
     Indication: RHINORRHOEA
     Dosage: BID; PO, TID; PO, ONCE; PO
     Route: 048
     Dates: start: 20100126
  7. HIGH BLOOD PRESSURE MEDICATIOM [Concomitant]

REACTIONS (7)
  - DYSKINESIA [None]
  - GAIT DISTURBANCE [None]
  - HALLUCINATION [None]
  - LOGORRHOEA [None]
  - PAIN IN EXTREMITY [None]
  - SOMNOLENCE [None]
  - UNEVALUABLE EVENT [None]
